FAERS Safety Report 22364364 (Version 3)
Quarter: 2024Q3

REPORT INFORMATION
  Report Type: Spontaneous
  Country: US (occurrence: US)
  Receive Date: 20230525
  Receipt Date: 20240905
  Transmission Date: 20241016
  Serious: Yes (Hospitalization)
  Sender: UCB
  Company Number: US-UCBSA-2023000754

PATIENT
  Age: 36 Year
  Sex: Female

DRUGS (2)
  1. CIMZIA [Suspect]
     Active Substance: CERTOLIZUMAB PEGOL
     Indication: Rheumatoid arthritis
     Dosage: 200 MILLIGRAM, EV 2 WEEKS(QOW)
     Route: 058
  2. CIMZIA [Suspect]
     Active Substance: CERTOLIZUMAB PEGOL
     Dosage: 300 MILLIGRAM
     Route: 058
     Dates: start: 202209

REACTIONS (7)
  - Nephrolithiasis [Recovering/Resolving]
  - Infection [Recovering/Resolving]
  - Immune system disorder [Recovering/Resolving]
  - Adenomyosis [Recovering/Resolving]
  - Product dose omission issue [Unknown]
  - Off label use [Unknown]
  - Insurance issue [Unknown]

NARRATIVE: CASE EVENT DATE: 20220901
